FAERS Safety Report 6399260-X (Version None)
Quarter: 2009Q4

REPORT INFORMATION
  Report Type: 
  Country: None (occurrence: None)
  Receive Date: 20091014
  Receipt Date: 20070904
  Transmission Date: 20100525
  Serious: Yes (Other)
  Sender: FDA-Public Use
  Company Number: US-ASTRAZENECA-2006UW08472

PATIENT
  Age: 67 Year
  Sex: Male
  Weight: 127 kg

DRUGS (16)
  1. SEROQUEL [Suspect]
     Indication: DEPRESSION
     Dosage: 200 MG TO 300 MG
     Route: 048
     Dates: start: 20040402, end: 20070401
  2. SEROQUEL [Suspect]
     Indication: ANXIETY
     Dosage: 200 MG TO 300 MG
     Route: 048
     Dates: start: 20040402, end: 20070401
  3. SEROQUEL [Suspect]
     Indication: SLEEP DISORDER
     Dosage: 200 MG TO 300 MG
     Route: 048
     Dates: start: 20040402, end: 20070401
  4. SEROQUEL [Suspect]
     Route: 048
     Dates: start: 20050815
  5. SEROQUEL [Suspect]
     Route: 048
     Dates: start: 20050815
  6. SEROQUEL [Suspect]
     Route: 048
     Dates: start: 20050815
  7. LITHIUM CARBONATE [Concomitant]
     Indication: DEPRESSION
     Route: 048
     Dates: start: 20020403
  8. SONATA [Concomitant]
     Indication: SLEEP DISORDER
     Route: 048
     Dates: start: 20050815
  9. BUSPAR [Concomitant]
     Indication: ANXIETY
     Route: 048
     Dates: start: 19970709
  10. PHENTERMINE HYDROCHLORIDE [Concomitant]
     Route: 048
     Dates: start: 20050617
  11. LEVOXYL [Concomitant]
     Indication: THYROID DISORDER
     Route: 048
     Dates: start: 20060117
  12. ATENOLOL [Concomitant]
     Indication: BLOOD PRESSURE
     Dosage: 1/2 - 1 TABLET EVERY DAY, DOSE - 25 - 50 MG
     Route: 048
     Dates: start: 20060531
  13. AVANDIA [Concomitant]
     Route: 048
     Dates: start: 20020403
  14. FLOMAX [Concomitant]
     Route: 048
     Dates: start: 20060118
  15. ADALAT [Concomitant]
     Indication: HYPERTENSION
     Route: 048
     Dates: start: 19980406
  16. FUROSEMIDE [Concomitant]
     Indication: FLUID RETENTION
     Route: 048
     Dates: start: 20060503

REACTIONS (3)
  - DIABETES MELLITUS [None]
  - THERAPEUTIC AGENT TOXICITY [None]
  - TYPE 2 DIABETES MELLITUS [None]
